FAERS Safety Report 24917743 (Version 4)
Quarter: 2025Q3

REPORT INFORMATION
  Report Type: Spontaneous
  Country: US (occurrence: US)
  Receive Date: 20250203
  Receipt Date: 20250807
  Transmission Date: 20251021
  Serious: Yes (Hospitalization, Other)
  Sender: SANOFI AVENTIS
  Company Number: US-SA-2025SA031239

PATIENT
  Age: 74 Year
  Sex: Male

DRUGS (2)
  1. DUPIXENT [Suspect]
     Active Substance: DUPILUMAB
     Indication: Dermatitis atopic
     Dosage: 300MG, QOW
     Route: 058
     Dates: start: 20250113, end: 202502
  2. DUPIXENT [Suspect]
     Active Substance: DUPILUMAB
     Dosage: 300 MG, Q4W
     Route: 058
     Dates: start: 20241212, end: 20250113

REACTIONS (12)
  - Syncope [Unknown]
  - Head injury [Unknown]
  - Visual impairment [Unknown]
  - Cold sweat [Unknown]
  - Feeling hot [Unknown]
  - Vertigo [Unknown]
  - Viral infection [Unknown]
  - Neuritis [Unknown]
  - Rash [Unknown]
  - Dry eye [Unknown]
  - Product prescribing error [Unknown]
  - Inappropriate schedule of product administration [Unknown]

NARRATIVE: CASE EVENT DATE: 20241212
